FAERS Safety Report 5910893-4 (Version None)
Quarter: 2008Q4

REPORT INFORMATION
  Report Type: 
  Country: None (occurrence: None)
  Receive Date: 20081007
  Receipt Date: 20080627
  Transmission Date: 20090506
  Serious: Yes (Other)
  Sender: FDA-Public Use
  Company Number: US-ASTRAZENECA-2008UW12970

PATIENT
  Age: 62 Year
  Sex: Female
  Weight: 70.8 kg

DRUGS (5)
  1. ARIMIDEX [Suspect]
     Indication: BREAST CANCER
     Route: 048
  2. TRICOR [Concomitant]
  3. VYTORIN [Concomitant]
  4. EFFEXOR [Concomitant]
  5. FOSAMAX [Concomitant]

REACTIONS (3)
  - HOT FLUSH [None]
  - OSTEOPENIA [None]
  - OSTEOPOROSIS [None]
